FAERS Safety Report 14912579 (Version 1)
Quarter: 2018Q2

REPORT INFORMATION
  Report Type: Spontaneous
  Country: US (occurrence: US)
  Receive Date: 20180501
  Receipt Date: 20180501
  Transmission Date: 20180711
  Serious: Yes (Hospitalization)
  Sender: FDA-Public Use
  Company Number: None

PATIENT
  Age: 37 Year
  Sex: Female
  Weight: 95.7 kg

DRUGS (1)
  1. METFORMIN HYDROCHLORIDE. [Suspect]
     Active Substance: METFORMIN HYDROCHLORIDE
     Dates: end: 20180422

REACTIONS (7)
  - Pulmonary infarction [None]
  - Thrombophlebitis superficial [None]
  - Pulmonary embolism [None]
  - Deep vein thrombosis [None]
  - Chest pain [None]
  - Pericarditis [None]
  - Sinus tachycardia [None]

NARRATIVE: CASE EVENT DATE: 20180422
